FAERS Safety Report 22006830 (Version 1)
Quarter: 2023Q1

REPORT INFORMATION
  Report Type: Spontaneous
  Country: DE (occurrence: DE)
  Receive Date: 20230217
  Receipt Date: 20230217
  Transmission Date: 20230417
  Serious: Yes (Other)
  Sender: FDA-Public Use
  Company Number: DE-Stemline Therapeutics, Inc.-2023ST000133

PATIENT

DRUGS (2)
  1. ELZONRIS [Suspect]
     Active Substance: TAGRAXOFUSP-ERZS
     Indication: Product used for unknown indication
     Dosage: CYCLE
     Route: 042
  2. ELZONRIS [Suspect]
     Active Substance: TAGRAXOFUSP-ERZS
     Dosage: ANOTHER CYCLE
     Route: 042

REACTIONS (2)
  - Disease recurrence [Unknown]
  - Blood stem cell transplant failure [Unknown]
